FAERS Safety Report 17483501 (Version 1)
Quarter: 2020Q1

REPORT INFORMATION
  Report Type: Spontaneous
  Country: US (occurrence: US)
  Receive Date: 20200301
  Receipt Date: 20200301
  Transmission Date: 20200409
  Serious: Yes (Life-Threatening)
  Sender: FDA-Public Use
  Company Number: None

PATIENT
  Age: 51 Year
  Sex: Female
  Weight: 72 kg

DRUGS (8)
  1. PROVENTIL [Concomitant]
     Active Substance: ALBUTEROL
  2. BENADRYL [Concomitant]
     Active Substance: DIPHENHYDRAMINE HYDROCHLORIDE
  3. CLONAZEPAM. [Concomitant]
     Active Substance: CLONAZEPAM
  4. DULOXETINE 60 MG [Suspect]
     Active Substance: DULOXETINE
     Dosage: ?          QUANTITY:1 CAPSULE(S);?
     Route: 048
  5. ADVAIR 500 [Concomitant]
  6. PROGESTERONE. [Concomitant]
     Active Substance: PROGESTERONE
  7. FLONASE [Concomitant]
     Active Substance: FLUTICASONE PROPIONATE
  8. ESTRIADOL [Concomitant]
     Active Substance: ESTRADIOL

REACTIONS (4)
  - Depressed mood [None]
  - Suicidal ideation [None]
  - Product complaint [None]
  - Depression [None]

NARRATIVE: CASE EVENT DATE: 20200228
